FAERS Safety Report 21146773 (Version 4)
Quarter: 2022Q3

REPORT INFORMATION
  Report Type: Spontaneous
  Country: RU (occurrence: RU)
  Receive Date: 20220729
  Receipt Date: 20220818
  Transmission Date: 20221027
  Serious: Yes (Other)
  Sender: FDA-Public Use
  Company Number: RU-China IPSEN SC-2022-20955

PATIENT
  Age: 31 Year
  Sex: Female
  Weight: 50 kg

DRUGS (6)
  1. DYSPORT [Suspect]
     Active Substance: ABOBOTULINUMTOXINA
     Indication: Skin wrinkling
     Dosage: 48 IU- ELIMINATION OF MIMIC WRINKLES (GLABELLAR AREA AND FOREHEAD)
     Route: 065
     Dates: start: 20220718, end: 20220718
  2. DYSPORT [Suspect]
     Active Substance: ABOBOTULINUMTOXINA
     Indication: Skin wrinkling
  3. AXAMON [Concomitant]
  4. CETRIN [Concomitant]
  5. EMOXYPINE SUCCINATE [Concomitant]
     Active Substance: EMOXYPINE SUCCINATE
     Route: 042
  6. POLYSORB [Concomitant]

REACTIONS (9)
  - Botulism [Unknown]
  - Dizziness [Not Recovered/Not Resolved]
  - Nausea [Not Recovered/Not Resolved]
  - Vomiting [Recovered/Resolved]
  - Diarrhoea [Recovered/Resolved]
  - Body temperature increased [Not Recovered/Not Resolved]
  - Decreased appetite [Not Recovered/Not Resolved]
  - Head discomfort [Unknown]
  - Eye disorder [Unknown]

NARRATIVE: CASE EVENT DATE: 20220701
